FAERS Safety Report 17598023 (Version 3)
Quarter: 2021Q2

REPORT INFORMATION
  Report Type: Spontaneous
  Country: US (occurrence: US)
  Receive Date: 20200330
  Receipt Date: 20210504
  Transmission Date: 20210716
  Serious: No
  Sender: FDA-Public Use
  Company Number: US-PFIZER INC-2020076513

PATIENT
  Age: 77 Year
  Sex: Female
  Weight: 90.25 kg

DRUGS (5)
  1. IBRANCE [Suspect]
     Active Substance: PALBOCICLIB
     Indication: INFLAMMATORY CARCINOMA OF THE BREAST
     Dosage: 100 MG, 1X/DAY
     Dates: start: 201707
  2. CEPHALEXINE [Concomitant]
     Active Substance: CEPHALEXIN
     Indication: STAPHYLOCOCCAL INFECTION
     Dosage: 500 MG, 3X/DAY
     Dates: start: 20200310
  3. IBRANCE [Suspect]
     Active Substance: PALBOCICLIB
     Dosage: 100 MG, 1X/DAY
     Dates: start: 20200316
  4. COVID?19 VACCINE NOS. [Concomitant]
     Active Substance: COVID-19 VACCINE NOS
     Dosage: UNK
  5. DOXYCYCLINE. [Concomitant]
     Active Substance: DOXYCYCLINE
     Indication: STAPHYLOCOCCAL SEPSIS
     Dosage: UNK (6GM REDUCED TO 3)
     Dates: start: 20200114

REACTIONS (2)
  - Fatigue [Unknown]
  - Blood count abnormal [Unknown]
